FAERS Safety Report 22884937 (Version 4)
Quarter: 2023Q4

REPORT INFORMATION
  Report Type: Report from Study
  Country: DE (occurrence: DE)
  Receive Date: 20230830
  Receipt Date: 20231109
  Transmission Date: 20240110
  Serious: Yes (Life-Threatening, Hospitalization)
  Sender: FDA-Public Use
  Company Number: DE-PFIZER INC-PV202300145080

PATIENT
  Age: 59 Year
  Sex: Male
  Weight: 170 kg

DRUGS (4)
  1. AXITINIB [Suspect]
     Active Substance: AXITINIB
     Dosage: 3 MG, 2X/DAY
     Dates: start: 20230725, end: 20230913
  2. PEMBROLIZUMAB [Suspect]
     Active Substance: PEMBROLIZUMAB
     Dosage: 200 MG
     Dates: start: 20230725, end: 20230913
  3. METOPROLOL [Concomitant]
     Active Substance: METOPROLOL
     Indication: Hypertension
     Dosage: 190 MG, DAILY
     Route: 048
     Dates: end: 20230829
  4. AMLODIPINE\RAMIPRIL [Concomitant]
     Active Substance: AMLODIPINE\RAMIPRIL
     Indication: Hypertension
     Dosage: 10/10 MG DAILY
     Route: 048
     Dates: end: 202308

REACTIONS (1)
  - Platelet count decreased [Not Recovered/Not Resolved]

NARRATIVE: CASE EVENT DATE: 20230816
